FAERS Safety Report 25630015 (Version 1)
Quarter: 2025Q3

REPORT INFORMATION
  Report Type: Spontaneous
  Country: US (occurrence: US)
  Receive Date: 20250801
  Receipt Date: 20250801
  Transmission Date: 20251020
  Serious: Yes (Other)
  Sender: AMGEN
  Company Number: US-AMGEN-USASP2025147256

PATIENT

DRUGS (1)
  1. PREDNISONE [Suspect]
     Active Substance: PREDNISONE
     Indication: Colitis ulcerative
     Route: 065

REACTIONS (13)
  - Cerebrovascular accident [Unknown]
  - Macular oedema [Unknown]
  - Lymphopenia [Unknown]
  - Myocardial ischaemia [Unknown]
  - Sepsis [Unknown]
  - Electrocardiogram QT prolonged [Unknown]
  - Hypertensive crisis [Unknown]
  - Bradycardia [Unknown]
  - Atrioventricular block [Unknown]
  - Herpes zoster [Unknown]
  - Hepatic enzyme abnormal [Unknown]
  - Upper respiratory tract infection [Unknown]
  - Urinary tract infection [Unknown]
